FAERS Safety Report 4945059-8 (Version None)
Quarter: 2006Q1

REPORT INFORMATION
  Report Type: 
  Country: None (occurrence: None)
  Receive Date: 20060117
  Receipt Date: 20051102
  Transmission Date: 20060701
  Serious: No
  Sender: FDA-Public Use
  Company Number: FEI2005-3061

PATIENT
  Age: 26 Year
  Sex: Female

DRUGS (1)
  1. INTRAUTERINE COPPER CONTRACEPTIVE [Suspect]
     Indication: CONTRACEPTION
     Dosage: INTRA-UTERINE
     Route: 015
     Dates: start: 20020101, end: 20020401

REACTIONS (3)
  - ABORTION SPONTANEOUS [None]
  - FOREIGN BODY TRAUMA [None]
  - UTERINE PERFORATION [None]
